FAERS Safety Report 17444910 (Version 1)
Quarter: 2020Q1

REPORT INFORMATION
  Report Type: Spontaneous
  Country: GB (occurrence: GB)
  Receive Date: 20200221
  Receipt Date: 20200221
  Transmission Date: 20200409
  Serious: Yes (Hospitalization)
  Sender: FDA-Public Use
  Company Number: GB-TEVA-2020-GB-1189725

PATIENT
  Age: 83 Year
  Sex: Female
  Weight: 86.8 kg

DRUGS (6)
  1. IBUPROFEN. [Concomitant]
     Active Substance: IBUPROFEN
     Indication: PAIN
     Dosage: 1 DOSAGE FORM
  2. STEROID [Suspect]
     Active Substance: UNSPECIFIED INGREDIENT
     Indication: ARTHRALGIA
     Dosage: ONE WEEK AGO
  3. COLECALCIFEROL [Concomitant]
     Active Substance: CHOLECALCIFEROL
  4. LANSOPRAZOLE. [Concomitant]
     Active Substance: LANSOPRAZOLE
     Dosage: 15 MG
  5. NAPROXEN. [Suspect]
     Active Substance: NAPROXEN
     Dosage: 500 MG
     Route: 048
     Dates: start: 20191219
  6. LEVOTHYROXINE. [Concomitant]
     Active Substance: LEVOTHYROXINE
     Indication: PROPHYLAXIS AGAINST GASTROINTESTINAL ULCER

REACTIONS (3)
  - Upper gastrointestinal haemorrhage [Recovering/Resolving]
  - Abdominal pain upper [Unknown]
  - Faeces discoloured [Unknown]
